FAERS Safety Report 14818822 (Version 1)
Quarter: 2018Q2

REPORT INFORMATION
  Report Type: Spontaneous
  Country: US (occurrence: US)
  Receive Date: 20180427
  Receipt Date: 20180427
  Transmission Date: 20180711
  Serious: No
  Sender: FDA-Public Use
  Company Number: US-B.I. PHARMACEUTICALS,INC./RIDGEFIELD-2018-BI-021777

PATIENT
  Age: 64 Year
  Sex: Female

DRUGS (4)
  1. INSULIN; HUMALOG [Concomitant]
     Indication: TYPE 2 DIABETES MELLITUS
     Dosage: ONE INJECTION BID;  FORM STRENGTH: 5 U; FORMULATION: SUBCUTANEOUS
     Route: 058
  2. METFORMIN [Concomitant]
     Active Substance: METFORMIN HYDROCHLORIDE
     Indication: TYPE 2 DIABETES MELLITUS
     Dosage: ONE CAPLET BID;  FORM STRENGTH: 500MG; FORMULATION: CAPLET
     Route: 048
  3. SPIRIVA [Suspect]
     Active Substance: TIOTROPIUM BROMIDE MONOHYDRATE
     Indication: ASTHMA
     Route: 055
  4. INSULIN ; LANTUS [Concomitant]
     Indication: TYPE 2 DIABETES MELLITUS
     Dosage: ONE INJECTION BID;  FORM STRENGTH: 10U; FORMULATION: SUBCUTANEOUS
     Route: 058

REACTIONS (2)
  - Off label use [Unknown]
  - Incorrect route of drug administration [Unknown]

NARRATIVE: CASE EVENT DATE: 20180420
